FAERS Safety Report 9274462 (Version 1)
Quarter: 2013Q2

REPORT INFORMATION
  Report Type: Report from Study
  Country: AU (occurrence: AU)
  Receive Date: 20130507
  Receipt Date: 20130507
  Transmission Date: 20140414
  Serious: Yes (Disabling, Other)
  Sender: FDA-Public Use
  Company Number: AU-ROCHE-1204044

PATIENT
  Age: 71 Year
  Sex: Male
  Weight: 80.5 kg

DRUGS (3)
  1. ZELBORAF [Suspect]
     Indication: MALIGNANT MELANOMA
     Route: 048
     Dates: start: 20130103, end: 20130220
  2. GABAPENTIN [Concomitant]
     Indication: PAIN
     Route: 048
  3. OXYCONTIN [Concomitant]
     Indication: PAIN
     Route: 048

REACTIONS (7)
  - Hyperkeratosis [Recovering/Resolving]
  - Skin cancer [Unknown]
  - Photosensitivity reaction [Unknown]
  - Dysgeusia [Recovered/Resolved]
  - Vomiting [Recovered/Resolved]
  - Nausea [Recovered/Resolved]
  - Lip ulceration [Recovered/Resolved]
